FAERS Safety Report 8192306-8 (Version None)
Quarter: 2012Q1

REPORT INFORMATION
  Report Type: 
  Country: None (occurrence: None)
  Receive Date: 20120307
  Receipt Date: 20111026
  Transmission Date: 20120608
  Serious: Yes (Other)
  Sender: FDA-Public Use
  Company Number: PHHY2011US50858

PATIENT
  Sex: Male

DRUGS (5)
  1. RISPERDAL [Concomitant]
     Dosage: 1-2  DF, QHS
  2. AFINITOR [Suspect]
     Indication: ASTROCYTOMA, LOW GRADE
     Dosage: 2.5 MG, DAILY
     Route: 048
     Dates: start: 20110507
  3. AFINITOR [Suspect]
     Dosage: 5 MG, DAILY
     Route: 048
     Dates: start: 20110516
  4. AFINITOR [Suspect]
     Dates: start: 20111027, end: 20111130
  5. ZYRTEC [Concomitant]
     Dosage: UNK UKN, UNK
     Route: 065

REACTIONS (8)
  - ASTHMA [None]
  - PYREXIA [None]
  - PNEUMONIA [None]
  - RESPIRATORY TRACT CONGESTION [None]
  - MALAISE [None]
  - COUGH [None]
  - SPUTUM DISCOLOURED [None]
  - SINUSITIS [None]
